FAERS Safety Report 8898061 (Version 1)
Quarter: 2012Q4

REPORT INFORMATION
  Report Type: 
  Country: US (occurrence: US)
  Receive Date: 20121108
  Receipt Date: 20121108
  Transmission Date: 20130627
  Serious: No
  Sender: FDA-Public Use
  Company Number: US-AMGEN-USASP2012030486

PATIENT
  Age: 47 Year
  Sex: Female
  Weight: 81.63 kg

DRUGS (8)
  1. ENBREL [Suspect]
     Indication: PRODUCT USED FOR UNKNOWN INDICATION
     Dosage: 50 mg, qwk
     Route: 058
  2. METHOTREXATE [Concomitant]
     Dosage: 2.5 mg, UNK
  3. PLAQUENIL                          /00072602/ [Concomitant]
     Dosage: 200 mg, UNK
  4. HYDROXYCHLOROQUINE [Concomitant]
     Dosage: 200 mg, UNK
  5. MELOXICAM [Concomitant]
     Dosage: 7.5 mg, UNK
  6. FOLIC ACID [Concomitant]
  7. CHLORDIAZEPOX [Concomitant]
     Dosage: 10 mg, UNK
  8. OMEPRAZOLE [Concomitant]
     Dosage: 20 mg, UNK

REACTIONS (6)
  - Weight decreased [Recovering/Resolving]
  - Cough [Recovering/Resolving]
  - Decreased appetite [Recovering/Resolving]
  - Dysgeusia [Recovering/Resolving]
  - Throat irritation [Recovering/Resolving]
  - Injection site erythema [Unknown]
